FAERS Safety Report 25467308 (Version 4)
Quarter: 2025Q3

REPORT INFORMATION
  Report Type: Spontaneous
  Country: JP (occurrence: JP)
  Receive Date: 20250623
  Receipt Date: 20250714
  Transmission Date: 20251020
  Serious: Yes (Hospitalization)
  Sender: ABBVIE
  Company Number: JP-ABBVIE-6336622

PATIENT
  Age: 55 Year
  Sex: Female

DRUGS (7)
  1. ASENAPINE MALEATE [Suspect]
     Active Substance: ASENAPINE MALEATE
     Indication: Prophylaxis of nausea and vomiting
     Route: 060
  2. Tranexamic acide [Concomitant]
     Indication: Product used for unknown indication
     Route: 065
     Dates: start: 20250608, end: 20250609
  3. GRANISETRON HYDROCHLORIDE [Suspect]
     Active Substance: GRANISETRON HYDROCHLORIDE
     Indication: Product used for unknown indication
     Route: 042
     Dates: start: 20250606
  4. BISOPROLOL [Concomitant]
     Active Substance: BISOPROLOL
     Indication: Product used for unknown indication
     Dates: start: 20250609
  5. DEXTROMETHORPHAN HYDROBROMIDE [Concomitant]
     Active Substance: DEXTROMETHORPHAN HYDROBROMIDE
     Indication: Product used for unknown indication
  6. SENNOSIDES [Concomitant]
     Active Substance: SENNOSIDES
     Indication: Product used for unknown indication
     Dates: start: 20250610
  7. Lecicarbon [Concomitant]
     Indication: Product used for unknown indication

REACTIONS (1)
  - Post procedural haemorrhage [Recovered/Resolved]
